FAERS Safety Report 9729920 (Version 2)
Quarter: 2013Q4

REPORT INFORMATION
  Report Type: Spontaneous
  Country: FR (occurrence: FR)
  Receive Date: 20131204
  Receipt Date: 20131212
  Transmission Date: 20140711
  Serious: Yes (Life-Threatening, Hospitalization)
  Sender: FDA-Public Use
  Company Number: FR-PFIZER INC-2013345220

PATIENT
  Age: 45 Year
  Sex: Female

DRUGS (2)
  1. CYTOTEC [Suspect]
     Indication: EVACUATION OF RETAINED PRODUCTS OF CONCEPTION
     Dosage: 2 DF IN THE MORNING AND AT NOON
     Route: 048
     Dates: start: 20111108, end: 20111108
  2. LEVOTHYROX [Concomitant]

REACTIONS (5)
  - Off label use [Unknown]
  - Metrorrhagia [Recovered/Resolved]
  - Anaemia [Recovered/Resolved]
  - Loss of consciousness [Recovered/Resolved]
  - Hypotension [Recovered/Resolved]
